FAERS Safety Report 12083627 (Version 1)
Quarter: 2016Q1

REPORT INFORMATION
  Report Type: Report from Study
  Country: FR (occurrence: FR)
  Receive Date: 20160217
  Receipt Date: 20160217
  Transmission Date: 20160526
  Serious: Yes (Hospitalization)
  Sender: FDA-Public Use
  Company Number: FR-UCBSA-2016005513

PATIENT
  Sex: Female
  Weight: 73 kg

DRUGS (7)
  1. APRANAX [Concomitant]
     Active Substance: NAPROXEN
     Indication: RHEUMATOID ARTHRITIS
     Dosage: 550 MG, ONCE DAILY (QD)
     Route: 048
     Dates: start: 201201
  2. UVEDOSE [Suspect]
     Active Substance: CHOLECALCIFEROL
     Indication: RHEUMATOID ARTHRITIS
     Dosage: 300000 IU, YEARLY
     Dates: start: 20120303
  3. LOVENOX [Concomitant]
     Active Substance: ENOXAPARIN SODIUM
     Indication: PROPHYLAXIS
     Dosage: 0.2 ML, ONCE DAILY (QD)
     Route: 058
     Dates: start: 20121018
  4. METOJECT [Suspect]
     Active Substance: METHOTREXATE SODIUM
     Indication: RHEUMATOID ARTHRITIS
     Dosage: 20 MG, WEEKLY (QW)
     Route: 058
     Dates: start: 20070601
  5. DOLIPRANE [Concomitant]
     Active Substance: ACETAMINOPHEN
     Indication: RHEUMATOID ARTHRITIS
     Dosage: 1000 MG, AS NEEDED (PRN)
     Route: 048
     Dates: start: 20120730
  6. CERTOLIZUMAB PEGOL RA [Suspect]
     Active Substance: CERTOLIZUMAB PEGOL
     Indication: RHEUMATOID ARTHRITIS
     Dosage: 200 MG, WEEKLY (QW)
     Route: 058
     Dates: start: 20120505, end: 20120918
  7. OMEPRAZOLE. [Concomitant]
     Active Substance: OMEPRAZOLE
     Indication: PROPHYLAXIS
     Dosage: 20 MG, ONCE DAILY (QD)
     Route: 048
     Dates: start: 201203

REACTIONS (4)
  - Arthralgia [Recovered/Resolved]
  - Uterine leiomyoma [Recovered/Resolved]
  - Red blood cell sedimentation rate increased [Recovered/Resolved]
  - Tendonitis [Recovered/Resolved]

NARRATIVE: CASE EVENT DATE: 20120717
